FAERS Safety Report 8512709-9 (Version None)
Quarter: 2012Q3

REPORT INFORMATION
  Report Type: 
  Country: None (occurrence: None)
  Receive Date: 20120716
  Receipt Date: 20120711
  Transmission Date: 20120928
  Serious: Yes (Disabling)
  Sender: FDA-Public Use
  Company Number: US-PFIZER INC-2012167809

PATIENT
  Sex: Female

DRUGS (2)
  1. ACCURETIC [Suspect]
     Indication: HYPERTENSION
     Dosage: 20 MG/12.5 MG, UNK
     Dates: start: 20060101
  2. DILANTIN [Suspect]
     Indication: CONVULSION
     Dosage: 100 MG, UNK
     Dates: start: 20060101, end: 20120501

REACTIONS (1)
  - CARDIAC DISORDER [None]
